FAERS Safety Report 4786279-5 (Version None)
Quarter: 2005Q3

REPORT INFORMATION
  Report Type: 
  Country: None (occurrence: None)
  Receive Date: 20050914
  Receipt Date: 20050302
  Transmission Date: 20060218
  Serious: Yes (Hospitalization)
  Sender: FDA-Public Use
  Company Number: 163-20785-05030033

PATIENT
  Age: 55 Year
  Sex: Male

DRUGS (17)
  1. THALOMID [Suspect]
     Indication: BLADDER CANCER
     Dosage: SEE IMAGE
     Route: 048
     Dates: start: 20050209, end: 20050228
  2. THALOMID [Suspect]
     Indication: MYELODYSPLASTIC SYNDROME
     Dosage: SEE IMAGE
     Route: 048
     Dates: start: 20050209, end: 20050228
  3. THALOMID [Suspect]
     Indication: BLADDER CANCER
     Dosage: SEE IMAGE
     Route: 048
     Dates: start: 20050301
  4. THALOMID [Suspect]
     Indication: MYELODYSPLASTIC SYNDROME
     Dosage: SEE IMAGE
     Route: 048
     Dates: start: 20050301
  5. THALOMID [Suspect]
     Indication: BLADDER CANCER
     Dosage: SEE IMAGE
     Route: 048
     Dates: start: 20050406
  6. THALOMID [Suspect]
     Indication: MYELODYSPLASTIC SYNDROME
     Dosage: SEE IMAGE
     Route: 048
     Dates: start: 20050406
  7. ISOSORB (ISOSORBIDE) [Concomitant]
  8. LASIX [Concomitant]
  9. PLAVIX [Concomitant]
  10. ZOCOR [Concomitant]
  11. METOPROLOL TARTRATE [Concomitant]
  12. PRILOSEC [Concomitant]
  13. DIOVAN [Concomitant]
  14. PHOSLO [Concomitant]
  15. NOVOLIN N [Concomitant]
  16. RENAPHRO [Concomitant]
  17. ALAPRO [Concomitant]

REACTIONS (3)
  - CONVULSION [None]
  - SYNCOPE [None]
  - VENTRICULAR TACHYCARDIA [None]
